FAERS Safety Report 14039194 (Version 1)
Quarter: 2017Q4

REPORT INFORMATION
  Report Type: Spontaneous
  Country: US (occurrence: US)
  Receive Date: 20171004
  Receipt Date: 20171004
  Transmission Date: 20180321
  Serious: No
  Sender: FDA-Public Use
  Company Number: US-INDIVIOR LIMITED-INDV-098794-2017

PATIENT
  Sex: Male

DRUGS (6)
  1. SUBOXONE [Suspect]
     Active Substance: BUPRENORPHINE HYDROCHLORIDE\NALOXONE HYDROCHLORIDE
     Dosage: 4 MG DAILY BY CUTTING
     Route: 060
  2. PHENYLALANINE, DL- [Concomitant]
     Active Substance: PHENYLALANINE, DL-
     Indication: DEPRESSION
     Dosage: UNK
     Route: 065
  3. L TYROSINE [Concomitant]
     Indication: DEPRESSION
     Dosage: UNK
     Route: 065
  4. SUBOXONE [Suspect]
     Active Substance: BUPRENORPHINE HYDROCHLORIDE\NALOXONE HYDROCHLORIDE
     Dosage: 8 MG, DAILY
     Route: 060
  5. SUBOXONE [Suspect]
     Active Substance: BUPRENORPHINE HYDROCHLORIDE\NALOXONE HYDROCHLORIDE
     Indication: DRUG USE DISORDER
     Dosage: UNKNOWN, ONCE DAILY
     Route: 060
     Dates: start: 201606
  6. SUBOXONE [Suspect]
     Active Substance: BUPRENORPHINE HYDROCHLORIDE\NALOXONE HYDROCHLORIDE
     Dosage: 8 MG DAILY
     Route: 060

REACTIONS (8)
  - Depression [Recovered/Resolved]
  - Condition aggravated [Recovered/Resolved]
  - Tooth disorder [Recovered/Resolved]
  - Intentional underdose [Recovered/Resolved]
  - Hypoaesthesia [Recovered/Resolved]
  - Gait disturbance [Recovered/Resolved]
  - Pain [Unknown]
  - Product preparation error [Recovered/Resolved]

NARRATIVE: CASE EVENT DATE: 2016
